FAERS Safety Report 14402543 (Version 1)
Quarter: 2018Q1

REPORT INFORMATION
  Report Type: Spontaneous
  Country: ES (occurrence: ES)
  Receive Date: 20180117
  Receipt Date: 20180117
  Transmission Date: 20180509
  Serious: Yes (Hospitalization, Other)
  Sender: FDA-Public Use
  Company Number: ES-JNJFOC-20180113606

PATIENT
  Age: 52 Year
  Sex: Female

DRUGS (1)
  1. SIMPONI [Suspect]
     Active Substance: GOLIMUMAB
     Indication: ARTHRALGIA
     Route: 058
     Dates: start: 201712

REACTIONS (9)
  - Inflammation [Unknown]
  - Off label use [Unknown]
  - Lip blister [Unknown]
  - Hypersensitivity [Unknown]
  - Liver function test abnormal [Unknown]
  - Vomiting [Unknown]
  - Diarrhoea [Unknown]
  - Product use in unapproved indication [Unknown]
  - Renal failure [Unknown]

NARRATIVE: CASE EVENT DATE: 201712
